FAERS Safety Report 8097038-2 (Version None)
Quarter: 2012Q1

REPORT INFORMATION
  Report Type: 
  Country: None (occurrence: None)
  Receive Date: 20120129
  Receipt Date: 20111213
  Transmission Date: 20120608
  Serious: No
  Sender: FDA-Public Use
  Company Number: US-ABBOTT-11P-163-0880869-00

PATIENT
  Age: 41 Year
  Sex: Female

DRUGS (1)
  1. HUMIRA [Suspect]
     Indication: CROHN'S DISEASE
     Route: 058
     Dates: start: 20111118

REACTIONS (10)
  - NIGHT SWEATS [None]
  - DECREASED APPETITE [None]
  - FATIGUE [None]
  - ARTHRALGIA [None]
  - COUGH [None]
  - MIGRAINE [None]
  - PAIN IN EXTREMITY [None]
  - GAIT DISTURBANCE [None]
  - EYE DISORDER [None]
  - NASAL CONGESTION [None]
